FAERS Safety Report 15198455 (Version 1)
Quarter: 2018Q3

REPORT INFORMATION
  Report Type: Spontaneous
  Country: US (occurrence: US)
  Receive Date: 20180627
  Receipt Date: 20180627
  Transmission Date: 20181010
  Serious: Yes (Other)
  Sender: FDA-Public Use
  Company Number: None

PATIENT
  Age: 30 Year
  Sex: Male
  Weight: 69.75 kg

DRUGS (4)
  1. VALACYCLOVIR [Concomitant]
     Active Substance: VALACYCLOVIR HYDROCHLORIDE
  2. FLUCONAZOLE. [Concomitant]
     Active Substance: FLUCONAZOLE
  3. SPRYCEL [Suspect]
     Active Substance: DASATINIB
     Indication: ACUTE LYMPHOCYTIC LEUKAEMIA
     Route: 048
     Dates: start: 20180328, end: 20180626
  4. ICLUSIG [Concomitant]
     Active Substance: PONATINIB

REACTIONS (1)
  - Disease progression [None]
